FAERS Safety Report 10086270 (Version 1)
Quarter: 2014Q2

REPORT INFORMATION
  Report Type: Spontaneous
  Country: US (occurrence: US)
  Receive Date: 20140418
  Receipt Date: 20140418
  Transmission Date: 20141212
  Serious: No
  Sender: FDA-Public Use
  Company Number: US-ENDO PHARMACEUTICALS INC.-DIAZ20140001

PATIENT
  Age: 60 Year
  Sex: Female

DRUGS (3)
  1. DIAZEPAM 2MG [Suspect]
     Indication: PRODUCT USED FOR UNKNOWN INDICATION
     Route: 048
  2. AMLODIPINE BESYLATE TABLETS [Concomitant]
     Indication: HYPERTENSION
     Dosage: UNKNOWN
     Route: 048
  3. TESTIM [Concomitant]
     Indication: BLOOD TESTOSTERONE DECREASED
     Route: 065

REACTIONS (2)
  - Intentional product misuse [Not Recovered/Not Resolved]
  - Drug ineffective [Not Recovered/Not Resolved]
